FAERS Safety Report 9757518 (Version 1)
Quarter: 2013Q4

REPORT INFORMATION
  Report Type: Spontaneous
  Country: US (occurrence: US)
  Receive Date: 20131215
  Receipt Date: 20131215
  Transmission Date: 20140711
  Serious: Yes (Hospitalization)
  Sender: FDA-Public Use
  Company Number: US-JNJFOC-20131203098

PATIENT
  Age: 24 Month
  Sex: Female

DRUGS (2)
  1. CHILDREN^S TYLENOL [Suspect]
     Route: 048
  2. CHILDREN^S TYLENOL [Suspect]
     Indication: ACCIDENTAL EXPOSURE TO PRODUCT
     Dosage: 1/2 BOTTLE
     Route: 048

REACTIONS (1)
  - Accidental exposure to product by child [Unknown]
